FAERS Safety Report 8896248 (Version 1)
Quarter: 2012Q4

REPORT INFORMATION
  Report Type: Spontaneous
  Country: US (occurrence: None)
  Receive Date: 20121106
  Receipt Date: 20121106
  Transmission Date: 20130627
  Serious: Yes (Hospitalization)
  Sender: FDA-Public Use
  Company Number: None

PATIENT
  Age: 33 Year
  Sex: Male
  Weight: 83.46 kg

DRUGS (2)
  1. LAMOTRIGINE [Suspect]
     Indication: MOOD DISORDER NOS
     Dosage: 200MG DAILY PO
     Route: 048
     Dates: start: 20121001, end: 20121027
  2. FLUVOXAMINE MALEATE [Concomitant]

REACTIONS (5)
  - Chest pain [None]
  - Back pain [None]
  - Pain in jaw [None]
  - Product substitution issue [None]
  - Product quality issue [None]
